FAERS Safety Report 9589788 (Version 2)
Quarter: 2013Q4

REPORT INFORMATION
  Report Type: Spontaneous
  Country: US (occurrence: US)
  Receive Date: 20131003
  Receipt Date: 20131003
  Transmission Date: 20140711
  Serious: No
  Sender: FDA-Public Use
  Company Number: US-AMGEN-USASP2012064000

PATIENT
  Age: 50 Year
  Sex: Female

DRUGS (12)
  1. ENBREL [Suspect]
     Indication: RHEUMATOID ARTHRITIS
     Dosage: 50 MG, QWK
     Route: 058
     Dates: start: 20120801
  2. PREDNISONE [Concomitant]
     Dosage: 2.5 MG, UNK
  3. TRAZODONE [Concomitant]
     Dosage: 50 MG, UNK
  4. OMEPRAZOLE [Concomitant]
     Dosage: 40 MG, UNK
  5. FLEXERIL                           /00428402/ [Concomitant]
     Dosage: 5 MG, UNK
  6. FOLIC ACID [Concomitant]
     Dosage: 1 MG, UNK
  7. MOTRIN IB [Concomitant]
     Dosage: 200 MG, UNK
  8. METHOTREXATE [Concomitant]
     Dosage: 2.5 MG, UNK
  9. VITAMIN D3 [Concomitant]
     Dosage: UNK
  10. CALCIUM [Concomitant]
     Dosage: 500 MG, UNK
  11. CELEXA                             /00582602/ [Concomitant]
     Dosage: 40 MG, UNK
  12. LORTAB                             /00607101/ [Concomitant]
     Dosage: 5 TAB

REACTIONS (6)
  - Dry mouth [Unknown]
  - Nasal dryness [Unknown]
  - Headache [Not Recovered/Not Resolved]
  - Mouth breathing [Unknown]
  - Arthralgia [Not Recovered/Not Resolved]
  - Joint stiffness [Not Recovered/Not Resolved]
